FAERS Safety Report 17486652 (Version 1)
Quarter: 2020Q1

REPORT INFORMATION
  Report Type: Spontaneous
  Country: US (occurrence: US)
  Receive Date: 20200219
  Receipt Date: 20200219
  Transmission Date: 20200409
  Serious: Yes (Other)
  Sender: FDA-Public Use
  Company Number: None

PATIENT
  Age: 78 Year
  Sex: Female
  Weight: 54.43 kg

DRUGS (12)
  1. CENTIUM SILVER [Concomitant]
  2. RECLAST [Suspect]
     Active Substance: ZOLEDRONIC ACID
     Indication: OSTEOPOROSIS
     Dosage: ?          OTHER ROUTE:INFUSION?
     Dates: start: 20191209, end: 20191209
  3. SINGULAIR [Concomitant]
     Active Substance: MONTELUKAST SODIUM
  4. LEVOTHYROXIN [Concomitant]
     Active Substance: LEVOTHYROXINE
  5. CRAN TABS [Concomitant]
  6. POTASSIUM [Concomitant]
     Active Substance: POTASSIUM
  7. VITAMIN C [Concomitant]
     Active Substance: ASCORBIC ACID
  8. OMEGA 3 [Concomitant]
     Active Substance: OMEGA-3 FATTY ACIDS
  9. BLACK COHOSH [Concomitant]
     Active Substance: BLACK COHOSH
  10. MAGNESIUM [Concomitant]
     Active Substance: MAGNESIUM
  11. LIPITOR [Concomitant]
     Active Substance: ATORVASTATIN CALCIUM
  12. ANNUITY INHALANT [Concomitant]

REACTIONS (7)
  - Musculoskeletal pain [None]
  - Pain in extremity [None]
  - Dysstasia [None]
  - Chest pain [None]
  - Diarrhoea [None]
  - Dizziness [None]
  - Vomiting [None]
